FAERS Safety Report 9209185 (Version 1)
Quarter: 2013Q2

REPORT INFORMATION
  Report Type: Spontaneous
  Country: GB (occurrence: GB)
  Receive Date: 20130404
  Receipt Date: 20130404
  Transmission Date: 20140414
  Serious: Yes (Hospitalization)
  Sender: FDA-Public Use
  Company Number: GB-SANOFI-AVENTIS-2013SA034767

PATIENT
  Age: 62 Year
  Sex: Male
  Weight: 85 kg

DRUGS (3)
  1. CLEXANE [Suspect]
     Indication: DEEP VEIN THROMBOSIS
     Route: 058
     Dates: start: 20130312
  2. CEFTRIAXONE [Concomitant]
     Indication: CELLULITIS
     Dosage: ONGOING
     Route: 042
     Dates: start: 20130312
  3. TRAMADOL [Concomitant]
     Indication: PAIN
     Dosage: 50 TO 100MG FOUR TIMES DAILY, WHEN REQUIRED.
     Route: 048
     Dates: start: 20130312

REACTIONS (1)
  - Syncope [Recovered/Resolved]
